FAERS Safety Report 16721540 (Version 1)
Quarter: 2019Q3

REPORT INFORMATION
  Report Type: Spontaneous
  Country: US (occurrence: US)
  Receive Date: 20190820
  Receipt Date: 20190820
  Transmission Date: 20191005
  Serious: No
  Sender: FDA-Public Use
  Company Number: US-BIODELIVERY SCIENCES INTERNATIONAL-2018BDSI0524

PATIENT
  Sex: Male

DRUGS (3)
  1. BUPRENORPHINE. [Suspect]
     Active Substance: BUPRENORPHINE
     Route: 002
     Dates: start: 20180926
  2. BUPRENORPHINE. [Suspect]
     Active Substance: BUPRENORPHINE
     Indication: PAIN
     Route: 002
     Dates: start: 20180925, end: 20180926
  3. ZICONOTIDE ACETATE [Concomitant]
     Active Substance: ZICONOTIDE ACETATE
     Indication: PAIN
     Dosage: PAIN PUMP

REACTIONS (3)
  - Wrong technique in product usage process [Unknown]
  - Drug ineffective [Recovered/Resolved]
  - Oral administration complication [Unknown]

NARRATIVE: CASE EVENT DATE: 201809
